FAERS Safety Report 25988898 (Version 1)
Quarter: 2025Q4

REPORT INFORMATION
  Report Type: Spontaneous
  Country: US (occurrence: US)
  Receive Date: 20251103
  Receipt Date: 20251103
  Transmission Date: 20260118
  Serious: No
  Sender: RIGEL PHARMACEUTICALS
  Company Number: US-RIGEL Pharmaceuticals INC - 20241200106

PATIENT
  Age: 76 Year
  Sex: Female
  Weight: 47.174 kg

DRUGS (1)
  1. GAVRETO [Suspect]
     Active Substance: PRALSETINIB
     Indication: Thyroid cancer
     Dosage: 400 MG, QD
     Route: 048
     Dates: start: 20241212

REACTIONS (1)
  - Choking [Unknown]

NARRATIVE: CASE EVENT DATE: 20241213
